FAERS Safety Report 5386937-8 (Version None)
Quarter: 2007Q3

REPORT INFORMATION
  Report Type: 
  Country: None (occurrence: None)
  Receive Date: 20070713
  Receipt Date: 20070703
  Transmission Date: 20080115
  Serious: Yes (Other)
  Sender: FDA-Public Use
  Company Number: JP-PFIZER INC-2007054605

PATIENT
  Age: 65 Year
  Sex: Male

DRUGS (3)
  1. ZYVOX [Suspect]
  2. ALL OTHER THERAPEUTIC PRODUCTS [Concomitant]
  3. IRON [Concomitant]

REACTIONS (2)
  - CATARACT [None]
  - VISUAL ACUITY REDUCED [None]
